FAERS Safety Report 5388848-0 (Version None)
Quarter: 2007Q3

REPORT INFORMATION
  Report Type: 
  Country: None (occurrence: None)
  Receive Date: 20070716
  Receipt Date: 20070606
  Transmission Date: 20080115
  Serious: Yes (Death)
  Sender: FDA-Public Use
  Company Number: MX-ELI_LILLY_AND_COMPANY-MX200706000998

PATIENT
  Age: 64 Year
  Sex: Male
  Weight: 98.8 kg

DRUGS (4)
  1. ZYPREXA [Suspect]
     Indication: BIPOLAR DISORDER
     Dates: start: 20000501
  2. ZYPREXA [Suspect]
     Dosage: 20 MG, UNK
     Route: 048
     Dates: start: 20050929
  3. VALPROATE SODIUM [Concomitant]
     Indication: BIPOLAR DISORDER
     Dosage: 1200 MG, UNK
     Dates: start: 19980303
  4. CLONAZEPAM [Concomitant]
     Indication: ANXIETY
     Dosage: 2 MG, DAILY (1/D)
     Dates: start: 20040718

REACTIONS (2)
  - FRACTURE [None]
  - INFARCTION [None]
